FAERS Safety Report 12282340 (Version 2)
Quarter: 2016Q2

REPORT INFORMATION
  Report Type: Spontaneous
  Country: US (occurrence: US)
  Receive Date: 20160419
  Receipt Date: 20160426
  Transmission Date: 20160815
  Serious: No
  Sender: FDA-Public Use
  Company Number: US-009507513-1604USA003161

PATIENT
  Age: 78 Year
  Sex: Female

DRUGS (1)
  1. ASMANEX [Suspect]
     Active Substance: MOMETASONE FUROATE
     Indication: ASTHMA
     Dosage: 220 MICROGRAM, TWICE DAILY
     Route: 055

REACTIONS (4)
  - Asthma [Not Recovered/Not Resolved]
  - Drug dose omission [Unknown]
  - Incorrect dose administered by device [None]
  - Product container issue [Unknown]

NARRATIVE: CASE EVENT DATE: 20160404
